FAERS Safety Report 18131255 (Version 1)
Quarter: 2020Q3

REPORT INFORMATION
  Report Type: Report from Study
  Country: US (occurrence: US)
  Receive Date: 20200810
  Receipt Date: 20200810
  Transmission Date: 20201103
  Serious: Yes (Death)
  Sender: FDA-Public Use
  Company Number: US-EXELIXIS-CABO-20030427

PATIENT
  Age: 84 Year
  Sex: Female

DRUGS (2)
  1. CABOMETYX [Suspect]
     Active Substance: CABOZANTINIB S-MALATE
     Dosage: 60 MG, QD (2 DAYS ON 2 DAYS OFF)
     Route: 048
  2. CABOMETYX [Suspect]
     Active Substance: CABOZANTINIB S-MALATE
     Indication: LUNG NEOPLASM MALIGNANT
     Dosage: 60 MG, QD
     Route: 048
     Dates: start: 20200515

REACTIONS (17)
  - Dysphonia [Unknown]
  - Confusional state [Unknown]
  - Dry mouth [Unknown]
  - Asthenia [Unknown]
  - Diarrhoea [Unknown]
  - Death [Fatal]
  - Off label use [Unknown]
  - Bone contusion [Unknown]
  - Hypersomnia [Unknown]
  - Glossodynia [Unknown]
  - Fatigue [Unknown]
  - Inappropriate schedule of product administration [Unknown]
  - Speech disorder [Recovering/Resolving]
  - Memory impairment [Recovering/Resolving]
  - Fall [Unknown]
  - Gait disturbance [Recovering/Resolving]
  - Constipation [Unknown]

NARRATIVE: CASE EVENT DATE: 20200601
